FAERS Safety Report 4753711-2 (Version None)
Quarter: 2005Q3

REPORT INFORMATION
  Report Type: 
  Country: None (occurrence: None)
  Receive Date: 20050826
  Receipt Date: 20050816
  Transmission Date: 20060218
  Serious: Yes (Hospitalization)
  Sender: FDA-Public Use
  Company Number: AR-BRISTOL-MYERS SQUIBB COMPANY-13080049

PATIENT
  Age: 85 Year
  Sex: Male

DRUGS (3)
  1. MAXCEF [Suspect]
     Dosage: CEFEPIME HCL WAS INITIATED AT 1 G PER 12 HOURS AND INCREASED TO 2 G PER 12 HOURS.
     Route: 042
  2. AMIKACIN [Suspect]
     Route: 042
  3. CEFIXIME [Suspect]
     Route: 048

REACTIONS (1)
  - ENCEPHALOPATHY [None]
